FAERS Safety Report 6374370-1 (Version None)
Quarter: 2009Q3

REPORT INFORMATION
  Report Type: 
  Country: None (occurrence: None)
  Receive Date: 20090924
  Receipt Date: 20090213
  Transmission Date: 20100115
  Serious: No
  Sender: FDA-Public Use
  Company Number: A0768707A

PATIENT
  Age: 54 Year
  Sex: Female

DRUGS (4)
  1. EPZICOM [Suspect]
     Indication: HIV INFECTION
     Dosage: 600MG SINGLE DOSE
     Route: 048
     Dates: start: 20090212
  2. UNKNOWN MEDICATION [Concomitant]
  3. PREZISTA [Concomitant]
  4. UNKNOWN MEDICATION [Concomitant]

REACTIONS (5)
  - ABDOMINAL PAIN UPPER [None]
  - COUGH [None]
  - EPIGASTRIC DISCOMFORT [None]
  - INSOMNIA [None]
  - VOMITING [None]
